FAERS Safety Report 10034196 (Version 1)
Quarter: 2014Q1

REPORT INFORMATION
  Report Type: Spontaneous
  Country: US (occurrence: None)
  Receive Date: 20140324
  Receipt Date: 20140324
  Transmission Date: 20141002
  Serious: Yes (Other)
  Sender: FDA-Public Use
  Company Number: None

PATIENT
  Age: 61 Year
  Sex: Female
  Weight: 63.5 kg

DRUGS (3)
  1. ESTRADIOL [Suspect]
     Indication: HYPERHIDROSIS
     Dosage: 1/2 PILL?ONCE DAILY?TAKEN BY MOUTH?
     Route: 048
     Dates: start: 20070315, end: 20140301
  2. ESTRADIOL [Suspect]
     Indication: INSOMNIA
     Dosage: 1/2 PILL?ONCE DAILY?TAKEN BY MOUTH?
     Route: 048
     Dates: start: 20070315, end: 20140301
  3. ESTRADIOL [Suspect]
     Indication: DEPRESSION
     Dosage: 1/2 PILL?ONCE DAILY?TAKEN BY MOUTH?
     Route: 048
     Dates: start: 20070315, end: 20140301

REACTIONS (6)
  - Feeling drunk [None]
  - Disability [None]
  - Cataract [None]
  - Toxicity to various agents [None]
  - Overdose [None]
  - Speech disorder [None]
